FAERS Safety Report 4850998-2 (Version None)
Quarter: 2005Q4

REPORT INFORMATION
  Report Type: 
  Country: None (occurrence: None)
  Receive Date: 20051212
  Receipt Date: 20051005
  Transmission Date: 20060501
  Serious: Yes (Hospitalization, Disabling)
  Sender: FDA-Public Use
  Company Number: US-MERCK-0510USA04598

PATIENT
  Age: 45 Year
  Sex: Female
  Weight: 80 kg

DRUGS (2)
  1. VIOXX [Suspect]
     Indication: JOINT SPRAIN
     Route: 048
     Dates: start: 19990101
  2. ASPIRIN [Concomitant]
     Route: 065

REACTIONS (3)
  - AORTIC THROMBOSIS [None]
  - CARDIOVASCULAR DISORDER [None]
  - EMOTIONAL DISTRESS [None]
